FAERS Safety Report 17309462 (Version 1)
Quarter: 2020Q1

REPORT INFORMATION
  Report Type: Spontaneous
  Country: US (occurrence: US)
  Receive Date: 20200123
  Receipt Date: 20200123
  Transmission Date: 20200409
  Serious: No
  Sender: FDA-Public Use
  Company Number: US-ROCHE-2435561

PATIENT
  Sex: Male

DRUGS (2)
  1. HEMLIBRA [Suspect]
     Active Substance: EMICIZUMAB-KXWH
     Indication: FACTOR VIII DEFICIENCY
     Dosage: STARTED 4 TO 5 MONTHS AGO
     Route: 058
     Dates: start: 20190101
  2. PLASMA [Concomitant]
     Active Substance: HUMAN PLASMA
     Indication: FACTOR VIII DEFICIENCY
     Dosage: YES
     Route: 042

REACTIONS (1)
  - Pyrexia [Not Recovered/Not Resolved]

NARRATIVE: CASE EVENT DATE: 2019
